FAERS Safety Report 12265977 (Version 1)
Quarter: 2016Q2

REPORT INFORMATION
  Report Type: Spontaneous
  Country: AU (occurrence: AU)
  Receive Date: 20160413
  Receipt Date: 20160413
  Transmission Date: 20160815
  Serious: Yes (Hospitalization, Other)
  Sender: FDA-Public Use
  Company Number: AU-PFIZER INC-2016145983

PATIENT
  Age: 32 Year
  Sex: Male
  Weight: 78 kg

DRUGS (4)
  1. PRISTIQ EXTENDED-RELEASE [Suspect]
     Active Substance: DESVENLAFAXINE SUCCINATE
     Indication: ANXIETY
  2. PRISTIQ EXTENDED-RELEASE [Suspect]
     Active Substance: DESVENLAFAXINE SUCCINATE
     Indication: DEPRESSION
     Dosage: 50 MG, 1X/DAY
     Route: 048
     Dates: start: 2014
  3. SYMBICORT [Concomitant]
     Active Substance: BUDESONIDE\FORMOTEROL FUMARATE DIHYDRATE
     Indication: ASTHMA
  4. POLARAMINE [Concomitant]
     Active Substance: DEXCHLORPHENIRAMINE MALEATE
     Indication: RHINITIS
     Route: 048

REACTIONS (22)
  - Dyspnoea [Recovered/Resolved]
  - Withdrawal syndrome [Unknown]
  - Depersonalisation/derealisation disorder [Recovered/Resolved]
  - Confusional state [Recovered/Resolved]
  - Syncope [Recovered/Resolved]
  - Tinnitus [Unknown]
  - Tachycardia [Recovered/Resolved]
  - Pyrexia [Recovered/Resolved]
  - Chest discomfort [Recovered/Resolved]
  - Dizziness [Recovered/Resolved]
  - Exercise tolerance decreased [Recovered/Resolved]
  - Vomiting [Recovered/Resolved]
  - Cardiac murmur [Recovered/Resolved]
  - Muscular weakness [Recovered/Resolved]
  - Sinusitis [Recovered/Resolved]
  - Dizziness [Recovered/Resolved]
  - Fatigue [Recovered/Resolved]
  - Limb discomfort [Recovered/Resolved]
  - Disease recurrence [Recovered/Resolved]
  - Palpitations [Recovered/Resolved]
  - Cold sweat [Recovered/Resolved]
  - Migraine [Unknown]

NARRATIVE: CASE EVENT DATE: 2014
